FAERS Safety Report 15554147 (Version 1)
Quarter: 2018Q4

REPORT INFORMATION
  Report Type: Other
  Country: ES (occurrence: ES)
  Receive Date: 20181026
  Receipt Date: 20181026
  Transmission Date: 20190205
  Serious: Yes (Other)
  Sender: FDA-Public Use
  Company Number: ES-APOTEX-2018AP023052

PATIENT
  Age: 49 Year
  Sex: Male

DRUGS (2)
  1. PARACETAMOL [Suspect]
     Active Substance: ACETAMINOPHEN
     Indication: CATARRH
     Dosage: 650 MG, EVERY EIGHT HOURS (650 MG THREE TIMES A DAY)
     Route: 048
     Dates: start: 20180206, end: 20180213
  2. PRAVAFENIX [Concomitant]
     Active Substance: FENOFIBRATE\PRAVASTATIN
     Indication: HYPERTRIGLYCERIDAEMIA
     Dosage: UNK , QD (1 COMP ONE TIME A DAY)
     Route: 048
     Dates: start: 20151109

REACTIONS (2)
  - Hepatitis [Recovered/Resolved]
  - Hypocoagulable state [Recovered/Resolved]

NARRATIVE: CASE EVENT DATE: 20180213
